FAERS Safety Report 6033234-3 (Version None)
Quarter: 2009Q1

REPORT INFORMATION
  Report Type: 
  Country: None (occurrence: None)
  Receive Date: 20090105
  Receipt Date: 20080415
  Transmission Date: 20090719
  Serious: Yes (Other)
  Sender: FDA-Public Use
  Company Number: US-000640

PATIENT
  Age: 51 Year
  Sex: Male

DRUGS (2)
  1. MULTIHANCE [Suspect]
     Indication: COMPUTERISED TOMOGRAM ABNORMAL
     Dosage: 20ML INTRAVENOUS (NOT OTHERWISE SPECIFIED)
     Route: 042
     Dates: start: 20080407, end: 20080407
  2. MULTIHANCE [Suspect]
     Indication: NUCLEAR MAGNETIC RESONANCE IMAGING
     Dosage: 20ML INTRAVENOUS (NOT OTHERWISE SPECIFIED)
     Route: 042
     Dates: start: 20080407, end: 20080407

REACTIONS (1)
  - HYPERSENSITIVITY [None]
